FAERS Safety Report 12659409 (Version 2)
Quarter: 2016Q3

REPORT INFORMATION
  Report Type: Report from Study
  Country: US (occurrence: US)
  Receive Date: 20160817
  Receipt Date: 20160831
  Transmission Date: 20161109
  Serious: Yes (Hospitalization, Other)
  Sender: FDA-Public Use
  Company Number: US-GILEAD-2016-0228720

PATIENT
  Age: 82 Year
  Sex: Male

DRUGS (28)
  1. AMBRISENTAN [Suspect]
     Active Substance: AMBRISENTAN
     Indication: PULMONARY ARTERIAL HYPERTENSION
     Dosage: 5 MG, QD
     Route: 065
     Dates: start: 20150226, end: 20160811
  2. GABAPENTIN. [Concomitant]
     Active Substance: GABAPENTIN
  3. GLUCOSAMINE [Concomitant]
     Active Substance: GLUCOSAMINE
  4. AKWA TEARS                         /00134201/ [Concomitant]
  5. VITAMIN B12 [Concomitant]
     Active Substance: CYANOCOBALAMIN
  6. OMEGA 3                            /01333901/ [Concomitant]
     Active Substance: FISH OIL\TOCOPHEROL
  7. ACETAMINOPHEN. [Concomitant]
     Active Substance: ACETAMINOPHEN
  8. NEXIUM [Concomitant]
     Active Substance: ESOMEPRAZOLE MAGNESIUM
  9. ALVESCO [Concomitant]
     Active Substance: CICLESONIDE
  10. MULTIVITAMIN                       /00097801/ [Concomitant]
     Active Substance: VITAMINS
  11. MUCINEX [Concomitant]
     Active Substance: GUAIFENESIN
  12. KEPPRA [Concomitant]
     Active Substance: LEVETIRACETAM
  13. ALLOPURINOL. [Concomitant]
     Active Substance: ALLOPURINOL
  14. BETAMETH                           /00008502/ [Concomitant]
  15. HYDROCODONE BITARTRATE AND ACETAMINOPHEN [Concomitant]
     Active Substance: ACETAMINOPHEN\HYDROCODONE BITARTRATE
  16. METOPROLOL. [Concomitant]
     Active Substance: METOPROLOL
  17. AMLODIPINE [Concomitant]
     Active Substance: AMLODIPINE BESYLATE
  18. CALCIUM [Concomitant]
     Active Substance: CALCIUM
  19. FLUOCINONIDE. [Concomitant]
     Active Substance: FLUOCINONIDE
  20. TOPAMAX [Concomitant]
     Active Substance: TOPIRAMATE
  21. CLOTRIMAZOLE. [Concomitant]
     Active Substance: CLOTRIMAZOLE
  22. CLOPIDOGREL [Concomitant]
     Active Substance: CLOPIDOGREL BISULFATE
  23. ASPIRIN                            /00002701/ [Concomitant]
     Active Substance: ASPIRIN
  24. FISH OIL [Concomitant]
     Active Substance: FISH OIL
  25. FUROSEMIDE. [Concomitant]
     Active Substance: FUROSEMIDE
  26. ATORVASTATIN [Concomitant]
     Active Substance: ATORVASTATIN
  27. FLUTICASONE [Concomitant]
     Active Substance: FLUTICASONE\FLUTICASONE PROPIONATE
  28. CHLORHEXIDINE GLUCONATE. [Concomitant]
     Active Substance: CHLORHEXIDINE GLUCONATE

REACTIONS (1)
  - Coronary artery disease [Not Recovered/Not Resolved]
